FAERS Safety Report 20553241 (Version 2)
Quarter: 2022Q1

REPORT INFORMATION
  Report Type: Spontaneous
  Country: GB (occurrence: None)
  Receive Date: 20220304
  Receipt Date: 20220311
  Transmission Date: 20220424
  Serious: Yes (Death)
  Sender: FDA-Public Use
  Company Number: 2022A090443

PATIENT
  Age: 24399 Day
  Weight: 100.5 kg

DRUGS (3)
  1. BENRALIZUMAB [Suspect]
     Active Substance: BENRALIZUMAB
     Indication: Asthma
     Route: 058
     Dates: start: 20200513, end: 20211105
  2. SYMBICORT [Concomitant]
     Active Substance: BUDESONIDE\FORMOTEROL FUMARATE DIHYDRATE
     Indication: Asthma
     Dosage: 2, TWO TIMES A DAY
     Route: 055
     Dates: end: 20220210
  3. MONTELUKAST [Concomitant]
     Active Substance: MONTELUKAST SODIUM
     Indication: Asthma
     Route: 048
     Dates: end: 20220210

REACTIONS (1)
  - Death [Fatal]

NARRATIVE: CASE EVENT DATE: 20220212
